FAERS Safety Report 10518457 (Version 1)
Quarter: 2014Q4

REPORT INFORMATION
  Report Type: Spontaneous
  Country: US (occurrence: None)
  Receive Date: 20141014
  Receipt Date: 20141014
  Transmission Date: 20150528
  Serious: No
  Sender: FDA-Public Use
  Company Number: None

PATIENT

DRUGS (1)
  1. ATRYN [Suspect]
     Active Substance: ANTITHROMBIN ALFA

REACTIONS (1)
  - Product label confusion [None]
